FAERS Safety Report 5629813-5 (Version None)
Quarter: 2008Q1

REPORT INFORMATION
  Report Type: 
  Country: None (occurrence: None)
  Receive Date: 20080218
  Receipt Date: 20080208
  Transmission Date: 20080703
  Serious: Yes (Hospitalization, Disabling)
  Sender: FDA-Public Use
  Company Number: PHFR2008GB00677

PATIENT
  Sex: Female

DRUGS (1)
  1. ZOMETA [Suspect]
     Indication: MULTIPLE MYELOMA
     Dosage: 3 INFUSIONS
     Route: 042
     Dates: start: 20041201, end: 20050101

REACTIONS (4)
  - HEART RATE IRREGULAR [None]
  - HEPATIC FAILURE [None]
  - MALAISE [None]
  - TRACHEOSCOPY [None]
